FAERS Safety Report 18938051 (Version 1)
Quarter: 2021Q1

REPORT INFORMATION
  Report Type: Spontaneous
  Country: DE (occurrence: DE)
  Receive Date: 20210225
  Receipt Date: 20210225
  Transmission Date: 20210420
  Serious: Yes (Hospitalization)
  Sender: FDA-Public Use
  Company Number: DE-TEVA-2021-DE-1882692

PATIENT
  Age: 4 Year
  Sex: Male
  Weight: 20 kg

DRUGS (1)
  1. CEFACLOR 250MG/5ML [Suspect]
     Active Substance: CEFACLOR
     Indication: SCARLET FEVER
     Dosage: 5 ? 2.5 ? 5ML
     Route: 048
     Dates: start: 20190205, end: 20190210

REACTIONS (2)
  - Seizure [Recovered/Resolved]
  - Tremor [Recovered/Resolved]

NARRATIVE: CASE EVENT DATE: 20190210
